FAERS Safety Report 4431503-1 (Version None)
Quarter: 2004Q3

REPORT INFORMATION
  Report Type: 
  Country: None (occurrence: None)
  Receive Date: 20040818
  Receipt Date: 20040804
  Transmission Date: 20050211
  Serious: Yes (Hospitalization, Other)
  Sender: FDA-Public Use
  Company Number: USA040874531

PATIENT
  Age: 70 Year
  Sex: Male
  Weight: 83 kg

DRUGS (9)
  1. FORTEO [Suspect]
     Indication: OSTEOPOROSIS
     Dosage: 20 UG/1 DAY
     Dates: start: 20030201, end: 20040804
  2. ZOCOR [Concomitant]
  3. PREVACID [Concomitant]
  4. PREDNISONE [Concomitant]
  5. ADVAIR DISKUS 100/50 [Concomitant]
  6. FLONASE [Concomitant]
  7. ZOLOFT [Concomitant]
  8. MULTI-VITAMIN [Concomitant]
  9. CALCIUM WITH VITAMIN D [Concomitant]

REACTIONS (12)
  - ABDOMINAL PAIN UPPER [None]
  - APHAGIA [None]
  - ARTHRALGIA [None]
  - CONDITION AGGRAVATED [None]
  - CONSTIPATION [None]
  - DRUG INEFFECTIVE [None]
  - HIATUS HERNIA [None]
  - INSOMNIA [None]
  - MYALGIA [None]
  - NERVE INJURY [None]
  - PAIN [None]
  - VAGUS NERVE DISORDER [None]
